FAERS Safety Report 17286971 (Version 1)
Quarter: 2020Q1

REPORT INFORMATION
  Report Type: Spontaneous
  Country: JP (occurrence: JP)
  Receive Date: 20200120
  Receipt Date: 20200120
  Transmission Date: 20200409
  Serious: Yes (Hospitalization)
  Sender: FDA-Public Use
  Company Number: JP-PFIZER INC-2020023788

PATIENT
  Age: 84 Year
  Sex: Female
  Weight: 34 kg

DRUGS (11)
  1. AZULFIDINE EN-TABS [Suspect]
     Active Substance: SULFASALAZINE
     Indication: RHEUMATOID ARTHRITIS
     Dosage: 2 DF, 2X/DAY
     Route: 048
     Dates: start: 20190930, end: 20191115
  2. ONEALFA [Concomitant]
     Active Substance: ALFACALCIDOL
  3. FERROMIA [Concomitant]
     Active Substance: SODIUM FERROUS CITRATE
     Dosage: UNK
     Dates: end: 20191115
  4. XARELTO [Concomitant]
     Active Substance: RIVAROXABAN
  5. CRAVIT [Concomitant]
     Active Substance: LEVOFLOXACIN
  6. CARERAM [Suspect]
     Active Substance: IGURATIMOD
     Indication: RHEUMATOID ARTHRITIS
     Dosage: 2 DF, 2X/DAY
     Route: 048
     Dates: start: 20190902, end: 20191115
  7. TAKECAB [Concomitant]
     Active Substance: VONOPRAZAN FUMURATE
     Dosage: UNK
     Dates: end: 20191115
  8. DIART [Concomitant]
     Active Substance: AZOSEMIDE
  9. MAINTATE [Concomitant]
     Active Substance: BISOPROLOL FUMARATE
  10. PREDNISOLONE. [Concomitant]
     Active Substance: PREDNISOLONE
  11. SAMSCA [Concomitant]
     Active Substance: TOLVAPTAN
     Dosage: UNK

REACTIONS (1)
  - Hepatic function abnormal [Recovered/Resolved]

NARRATIVE: CASE EVENT DATE: 20191113
